FAERS Safety Report 9352409 (Version 4)
Quarter: 2013Q3

REPORT INFORMATION
  Report Type: Report from Study
  Country: US (occurrence: US)
  Receive Date: 20130617
  Receipt Date: 20130809
  Transmission Date: 20140515
  Serious: Yes (Hospitalization)
  Sender: FDA-Public Use
  Company Number: US-ABBOTT-13P-163-1102527-00

PATIENT
  Age: 53 Year
  Sex: Female

DRUGS (12)
  1. HUMIRA [Suspect]
     Indication: CROHN^S DISEASE
     Route: 058
     Dates: start: 20130422
  2. OMEPRAZOLE [Concomitant]
     Indication: DYSPEPSIA
  3. OMEPRAZOLE [Concomitant]
     Indication: GASTROOESOPHAGEAL REFLUX DISEASE
  4. DIOVAN [Concomitant]
     Indication: HYPERTENSION
     Dosage: 320 MG DAILY
  5. PREDNISONE [Concomitant]
     Indication: PRODUCT USED FOR UNKNOWN INDICATION
     Dosage: TAPER DOSE WEEKLY
  6. PREDNISONE [Concomitant]
  7. PREDNISONE [Concomitant]
  8. PERCOCET [Concomitant]
     Indication: PAIN
  9. ALPRAZOLAM [Concomitant]
     Indication: ANXIETY
     Dosage: AUTHORIZED UP TO 2 MG, 4 X DAY, USUALLY TAKES 2 X DAY
  10. FLONASE [Concomitant]
     Indication: CHRONIC SINUSITIS
     Dosage: 2 SPRAYS EACH NOSTRIL DAILY
  11. FLONASE [Concomitant]
     Indication: PROPHYLAXIS
  12. ENTOCORT [Concomitant]
     Indication: CROHN^S DISEASE

REACTIONS (10)
  - Gastrointestinal stenosis [Recovered/Resolved]
  - Vomiting projectile [Recovered/Resolved]
  - Abdominal distension [Recovered/Resolved]
  - Fluid retention [Recovered/Resolved]
  - Flatulence [Unknown]
  - Fatigue [Not Recovered/Not Resolved]
  - Fatigue [Not Recovered/Not Resolved]
  - Influenza like illness [Unknown]
  - Adverse drug reaction [Unknown]
  - Small intestinal obstruction [Recovering/Resolving]
